FAERS Safety Report 9037081 (Version 1)
Quarter: 2013Q1

REPORT INFORMATION
  Report Type: Spontaneous
  Country: US (occurrence: US)
  Receive Date: 20130129
  Receipt Date: 20130129
  Transmission Date: 20140127
  Serious: No
  Sender: FDA-Public Use
  Company Number: US-009507513-1301USA005397

PATIENT
  Sex: Male

DRUGS (4)
  1. VICTRELIS [Suspect]
     Indication: HEPATITIS C
     Dosage: 800 MG, Q8H
     Route: 048
     Dates: start: 2012
  2. PEGASYS [Suspect]
     Dosage: UNK
     Dates: start: 2012
  3. RIBASPHERE [Suspect]
     Dosage: UNK
     Dates: start: 2012
  4. PROPRANOLOL HYDROCHLORIDE [Concomitant]

REACTIONS (1)
  - Adverse event [Unknown]
